FAERS Safety Report 4617503-7 (Version None)
Quarter: 2005Q1

REPORT INFORMATION
  Report Type: 
  Country: None (occurrence: None)
  Receive Date: 20050321
  Receipt Date: 20050310
  Transmission Date: 20050727
  Serious: Yes (Other)
  Sender: FDA-Public Use
  Company Number: CHNY2005CA00568

PATIENT
  Age: 64 Year
  Sex: Female
  Weight: 60.9 kg

DRUGS (12)
  1. REXALL TRANSDERMAL NICOTINE PATCH (NCH)(NICOTINE) TRANS-THERAPEUTIC-SY [Suspect]
     Indication: SMOKING CESSATION THERAPY
     Dosage: 14 MG, QD, TRANSDERMAL
     Route: 062
     Dates: start: 20050305, end: 20050307
  2. SLOW-K [Concomitant]
  3. PHENOBARBITAL TAB [Concomitant]
  4. RANITIDINE [Concomitant]
  5. ACETYLSALICYLIC ACID SRT [Concomitant]
  6. ESTROGEN NOS (ESTROGEN NOS) [Concomitant]
  7. SENOKOT (SENNA ALEXANDRINA FRUIT) [Concomitant]
  8. SOFLAX (DOCUSATE SODIUM) [Concomitant]
  9. VITAMIN E [Concomitant]
  10. CALCIUM (CALCIUM) [Concomitant]
  11. MAGNESIUM (MAGNESIUM) [Concomitant]
  12. OSTOFORTE (ERGOCALCIFEROL) [Concomitant]

REACTIONS (4)
  - DIZZINESS [None]
  - DYSPNOEA [None]
  - MUSCLE CONTRACTIONS INVOLUNTARY [None]
  - MUSCLE TWITCHING [None]
